FAERS Safety Report 9495755 (Version 1)
Quarter: 2013Q3

REPORT INFORMATION
  Report Type: Spontaneous
  Country: GB (occurrence: GB)
  Receive Date: 20130903
  Receipt Date: 20130903
  Transmission Date: 20140515
  Serious: Yes (Other)
  Sender: FDA-Public Use
  Company Number: ALCN2013GB004388

PATIENT
  Age: 17 Year
  Sex: Female

DRUGS (3)
  1. PILOCARPINE [Suspect]
     Indication: GLAUCOMA
     Dosage: UNK UNK, QD
     Route: 047
  2. TIMOLOL MALEATE [Suspect]
     Indication: GLAUCOMA
     Dosage: UNK UNK, QD
     Route: 047
  3. BIMATOPROST [Concomitant]
     Indication: GLAUCOMA
     Dosage: UNK UNK, QD
     Route: 047
     Dates: start: 2000

REACTIONS (6)
  - Glaucoma surgery [Unknown]
  - Chorioretinal atrophy [Unknown]
  - Optic nerve cup/disc ratio [Unknown]
  - Iris adhesions [Unknown]
  - Vision blurred [Unknown]
  - Pupillary reflex impaired [Unknown]
